FAERS Safety Report 7210377-X (Version None)
Quarter: 2011Q1

REPORT INFORMATION
  Report Type: 
  Country: None (occurrence: None)
  Receive Date: 20110105
  Receipt Date: 20101223
  Transmission Date: 20110831
  Serious: Yes (Other)
  Sender: FDA-Public Use
  Company Number: PHFR2010GB06044

PATIENT
  Sex: Female

DRUGS (1)
  1. CLOZARIL [Suspect]
     Indication: SCHIZOPHRENIA
     Dosage: UNK
     Dates: start: 20101116, end: 20101205

REACTIONS (4)
  - CONFUSIONAL STATE [None]
  - BALANCE DISORDER [None]
  - CLUMSINESS [None]
  - HYPOKINESIA [None]
